FAERS Safety Report 4933932-6 (Version None)
Quarter: 2006Q1

REPORT INFORMATION
  Report Type: 
  Country: None (occurrence: None)
  Receive Date: 20060307
  Receipt Date: 20060224
  Transmission Date: 20060701
  Serious: Yes (Life-Threatening, Hospitalization)
  Sender: FDA-Public Use
  Company Number: DE-BOEHRINGER INGELHEIM PHARMACEUTICALS, INC.-2006-DE-01061DE

PATIENT
  Sex: Male
  Weight: 70 kg

DRUGS (2)
  1. CATAPRESAN [Suspect]
     Indication: ALCOHOL DETOXIFICATION
     Route: 042
  2. KLACID [Suspect]
     Indication: LUNG INFECTION
     Route: 042

REACTIONS (2)
  - ELECTROCARDIOGRAM QT PROLONGED [None]
  - VENTRICULAR TACHYCARDIA [None]
